FAERS Safety Report 4801156-9 (Version None)
Quarter: 2005Q4

REPORT INFORMATION
  Report Type: 
  Country: None (occurrence: None)
  Receive Date: 20051017
  Receipt Date: 20050929
  Transmission Date: 20060501
  Serious: Yes (Hospitalization)
  Sender: FDA-Public Use
  Company Number: 200512826JP

PATIENT
  Sex: Female

DRUGS (4)
  1. LANTUS [Suspect]
     Route: 058
     Dates: start: 20050828, end: 20050829
  2. OPTICLIK (INSULIN INJECTION PEN) [Suspect]
  3. NOVOLIN R [Concomitant]
     Dosage: DOSE: 16-10-12
  4. NOVOLIN N [Concomitant]

REACTIONS (2)
  - ANOREXIA [None]
  - DEHYDRATION [None]
